FAERS Safety Report 7012382-5 (Version None)
Quarter: 2010Q3

REPORT INFORMATION
  Report Type: 
  Country: None (occurrence: None)
  Receive Date: 20100924
  Receipt Date: 20100921
  Transmission Date: 20110219
  Serious: Yes (Death, Hospitalization)
  Sender: FDA-Public Use
  Company Number: PHHY2010BR62766

PATIENT
  Sex: Male
  Weight: 80 kg

DRUGS (6)
  1. EXELON [Suspect]
     Indication: DEMENTIA ALZHEIMER'S TYPE
     Dosage: 3 MG, BID
     Route: 048
  2. SOMALGIN [Concomitant]
     Dosage: ONE TABLET AFTER LUNCH
     Route: 048
  3. CITALOPRAM HYDROBROMIDE [Concomitant]
     Dosage: ONE TABLET PER DAY
     Route: 048
  4. SEROQUEL [Concomitant]
     Dosage: 0.5 DF, BID
     Route: 048
  5. DIAMICRON [Concomitant]
     Dosage: ONE TABLET PER DAY
     Route: 048
  6. CILOSTAZOL [Concomitant]
     Dosage: 1 DF, BID
     Route: 048

REACTIONS (1)
  - RESPIRATORY FAILURE [None]
